FAERS Safety Report 5414686-6 (Version None)
Quarter: 2007Q3

REPORT INFORMATION
  Report Type: 
  Country: None (occurrence: None)
  Receive Date: 20070813
  Receipt Date: 20070808
  Transmission Date: 20080115
  Serious: Yes (Other)
  Sender: FDA-Public Use
  Company Number: OSCN-PR-0609S-0279

PATIENT
  Sex: Female

DRUGS (1)
  1. OMNISCAN [Suspect]
     Indication: RENAL TRANSPLANT
     Dosage: 0.2 MMOL/KG, SINGLE DOSE, I.V.; SINGLE DOSE, I.A.
     Route: 042

REACTIONS (3)
  - ANISOCYTOSIS [None]
  - NEPHROGENIC SYSTEMIC FIBROSIS [None]
  - POLYCHROMASIA [None]
